FAERS Safety Report 7605268 (Version 2)
Quarter: 2012Q4

REPORT INFORMATION
  Report Type: 
  Country: US (occurrence: None)
  Receive Date: 20100914
  Receipt Date: 20120830
  Transmission Date: 20130627
  Serious: Yes (Other)
  Sender: FDA-Public Use
  Company Number: GER/USA/10/0015679

PATIENT
  Age: 33 Year
  Sex: Male

DRUGS (1)
  1. NAPROXEN [Suspect]
     Indication: HEADACHE

REACTIONS (3)
  - Anaphylactic reaction [None]
  - Arteriospasm coronary [None]
  - Acute myocardial infarction [None]
